FAERS Safety Report 4726074-6 (Version None)
Quarter: 2005Q3

REPORT INFORMATION
  Report Type: 
  Country: None (occurrence: None)
  Receive Date: 20050725
  Receipt Date: 20050503
  Transmission Date: 20060218
  Serious: Yes (Hospitalization)
  Sender: FDA-Public Use
  Company Number: 2005063843

PATIENT
  Age: 11 Year
  Sex: Male

DRUGS (2)
  1. ATARAX [Suspect]
     Indication: ANXIETY
     Dosage: 14 MG, INTRAVENOUS
     Route: 042
     Dates: start: 20050410, end: 20050413
  2. DEFEROXAMINE (DEFEROXAMINE) [Concomitant]

REACTIONS (1)
  - INCORRECT ROUTE OF DRUG ADMINISTRATION [None]
